FAERS Safety Report 19490145 (Version 3)
Quarter: 2021Q3

REPORT INFORMATION
  Report Type: Spontaneous
  Country: US (occurrence: US)
  Receive Date: 20210705
  Receipt Date: 20210809
  Transmission Date: 20211014
  Serious: No
  Sender: FDA-Public Use
  Company Number: US-SA-2021SA216862

PATIENT
  Age: 67 Year
  Sex: Female

DRUGS (2)
  1. DUPIXENT [Suspect]
     Active Substance: DUPILUMAB
     Indication: ASTHMA
     Dosage: 300 MG, QOW
     Dates: start: 202105
  2. PREDNISONE. [Suspect]
     Active Substance: PREDNISONE

REACTIONS (10)
  - Dysphonia [Unknown]
  - Osteoporosis [Unknown]
  - Injection site swelling [Recovered/Resolved]
  - Stomatitis [Unknown]
  - Condition aggravated [Unknown]
  - Pharyngeal ulceration [Unknown]
  - Dysphagia [Unknown]
  - Injection site pain [Recovered/Resolved]
  - Oral pain [Unknown]
  - Oropharyngeal pain [Unknown]

NARRATIVE: CASE EVENT DATE: 20210629
